FAERS Safety Report 6153418-3 (Version None)
Quarter: 2009Q2

REPORT INFORMATION
  Report Type: 
  Country: None (occurrence: None)
  Receive Date: 20090413
  Receipt Date: 20090410
  Transmission Date: 20091009
  Serious: Yes (Hospitalization)
  Sender: FDA-Public Use
  Company Number: US-B.I. PHARMACEUTICALS,INC./RIDGEFIELD-2009-BP-00969BP

PATIENT
  Sex: Female

DRUGS (6)
  1. SPIRIVA [Suspect]
     Indication: CHRONIC OBSTRUCTIVE PULMONARY DISEASE
     Dosage: 18MCG
     Route: 055
     Dates: start: 20060101
  2. SPIRIVA [Suspect]
     Indication: BRONCHITIS CHRONIC
  3. SPIRIVA [Suspect]
     Indication: ASTHMA
  4. ISOSORBIDE [Concomitant]
     Indication: ANGINA PECTORIS
     Dates: start: 20070101
  5. METOPROLOL TARTRATE [Concomitant]
     Indication: ANGINA PECTORIS
     Route: 048
     Dates: start: 20040101
  6. BENAZEPRIL HCT [Concomitant]
     Indication: ANGINA PECTORIS
     Route: 048
     Dates: start: 20070101

REACTIONS (8)
  - ANAEMIA [None]
  - CHOLELITHIASIS [None]
  - DRUG INEFFECTIVE [None]
  - GASTROOESOPHAGEAL REFLUX DISEASE [None]
  - HAEMATOMA [None]
  - OSTEOARTHRITIS [None]
  - URINARY TRACT INFECTION [None]
  - VARICOSE VEIN RUPTURED [None]
